FAERS Safety Report 12426970 (Version 1)
Quarter: 2016Q2

REPORT INFORMATION
  Report Type: Spontaneous
  Country: US (occurrence: US)
  Receive Date: 20160601
  Receipt Date: 20160601
  Transmission Date: 20160815
  Serious: No
  Sender: FDA-Public Use
  Company Number: US-SEPTODONT-201603292

PATIENT
  Age: 5 Decade
  Sex: Female
  Weight: 75 kg

DRUGS (2)
  1. SEPTOCAINE AND EPINEPHRINE [Suspect]
     Active Substance: ARTICAINE HYDROCHLORIDE\EPINEPHRINE BITARTRATE
     Indication: LOCAL ANAESTHESIA
     Dosage: ADMINISTERED 1 CARTRIDGE FOR ROUTINE RESTORATIVE DENTAL TREATMENT IN THE MAXILLA ON TOOTH #4
     Route: 004
     Dates: start: 20160211, end: 20160211
  2. NITROUS OXIDE. [Concomitant]
     Active Substance: NITROUS OXIDE

REACTIONS (2)
  - Pain [Recovered/Resolved]
  - Hypoaesthesia [Recovering/Resolving]
